FAERS Safety Report 10770984 (Version 2)
Quarter: 2015Q3

REPORT INFORMATION
  Report Type: Spontaneous
  Country: US (occurrence: US)
  Receive Date: 20150206
  Receipt Date: 20150908
  Transmission Date: 20151125
  Serious: No
  Sender: FDA-Public Use
  Company Number: US-GLAXOSMITHKLINE-A1090450A

PATIENT
  Age: 60 Year
  Sex: Female

DRUGS (13)
  1. ADVAIR DISKUS [Suspect]
     Active Substance: FLUTICASONE PROPIONATE\SALMETEROL XINAFOATE
     Indication: BRONCHITIS
     Dosage: 1 PUFF(S), BID
     Route: 055
     Dates: start: 201408
  2. KLOR-CON [Concomitant]
     Active Substance: POTASSIUM CHLORIDE
  3. ADVAIR DISKUS [Suspect]
     Active Substance: FLUTICASONE PROPIONATE\SALMETEROL XINAFOATE
     Dosage: 1 PUFF(S), BID
     Route: 055
  4. FLONASE [Concomitant]
     Active Substance: FLUTICASONE PROPIONATE
  5. COREG [Concomitant]
     Active Substance: CARVEDILOL
  6. COLESTIPOL [Concomitant]
     Active Substance: COLESTIPOL
  7. FAMOTIDINE. [Concomitant]
     Active Substance: FAMOTIDINE
  8. OXYCODONE/APAP [Concomitant]
     Active Substance: ACETAMINOPHEN\OXYCODONE HYDROCHLORIDE
  9. LEVOTHYROXINE. [Concomitant]
     Active Substance: LEVOTHYROXINE
  10. SPIRONOLACTONE. [Concomitant]
     Active Substance: SPIRONOLACTONE
  11. ASPIRIN. [Concomitant]
     Active Substance: ASPIRIN
  12. ALPRAZOLAM. [Concomitant]
     Active Substance: ALPRAZOLAM
     Indication: PRODUCT USED FOR UNKNOWN INDICATION
  13. CYCLOBENZAPRINE [Concomitant]
     Active Substance: CYCLOBENZAPRINE

REACTIONS (1)
  - Vitamin B12 decreased [Unknown]

NARRATIVE: CASE EVENT DATE: 201408
